FAERS Safety Report 4509006-5 (Version None)
Quarter: 2004Q4

REPORT INFORMATION
  Report Type: 
  Country: None (occurrence: None)
  Receive Date: 20041122
  Receipt Date: 20041122
  Transmission Date: 20050328
  Serious: Yes (Life-Threatening, Disabling)
  Sender: FDA-Public Use
  Company Number: None

PATIENT
  Age: 78 Year
  Sex: Male
  Weight: 99.6 kg

DRUGS (2)
  1. ALTEPLASE [Suspect]
     Indication: INTERMITTENT CLAUDICATION
     Dosage: 3 MG PER HOUR  INTRA-ARTE
     Route: 013
     Dates: start: 20040206, end: 20040207
  2. CLOPIDOGREL [Suspect]
     Dosage: 75 MG DAILY ORAL
     Route: 048
     Dates: start: 20040205, end: 20040207

REACTIONS (5)
  - ABASIA [None]
  - CEREBRAL HAEMORRHAGE [None]
  - COMA [None]
  - INTERMITTENT CLAUDICATION [None]
  - PERSONALITY CHANGE [None]
